FAERS Safety Report 24070993 (Version 1)
Quarter: 2024Q3

REPORT INFORMATION
  Report Type: Report from Study
  Country: US (occurrence: US)
  Receive Date: 20240710
  Receipt Date: 20240710
  Transmission Date: 20241016
  Serious: No
  Sender: ROCHE
  Company Number: US-ROCHE-3245747

PATIENT
  Age: 82 Year
  Sex: Female

DRUGS (1)
  1. ALECENSA [Suspect]
     Active Substance: ALECTINIB HYDROCHLORIDE
     Indication: Lung neoplasm malignant
     Dosage: TAKE 4 CAPSULE(S) (600 MG) IN THE MORNING AND AT BEDTIME
     Route: 048

REACTIONS (4)
  - Gait disturbance [Unknown]
  - Bradykinesia [Unknown]
  - Fear [Unknown]
  - Nervousness [Unknown]
